FAERS Safety Report 7806176-8 (Version None)
Quarter: 2011Q4

REPORT INFORMATION
  Report Type: 
  Country: None (occurrence: None)
  Receive Date: 20111011
  Receipt Date: 20110929
  Transmission Date: 20120403
  Serious: Yes (Hospitalization)
  Sender: FDA-Public Use
  Company Number: CA-US-EMD SERONO, INC.-7086671

PATIENT
  Sex: Female

DRUGS (9)
  1. VITAMIN E [Concomitant]
     Route: 048
  2. REBIF [Suspect]
     Indication: PRODUCT USED FOR UNKNOWN INDICATION
     Route: 058
     Dates: start: 20000401, end: 20010501
  3. MINOCYCLINE HCL [Concomitant]
     Route: 048
  4. LOVAZA [Concomitant]
     Route: 048
  5. ZINC [Concomitant]
     Route: 048
  6. MULTI-VITAMIN [Concomitant]
     Route: 048
  7. VITAMIN D [Concomitant]
     Route: 048
  8. NAPROSYN [Concomitant]
     Route: 048
  9. REBIF [Suspect]
     Route: 058
     Dates: start: 20070604

REACTIONS (2)
  - ENDOMETRIOSIS [None]
  - OVARIAN CYST [None]
